FAERS Safety Report 11538505 (Version 2)
Quarter: 2015Q4

REPORT INFORMATION
  Report Type: Spontaneous
  Country: TW (occurrence: TW)
  Receive Date: 20150922
  Receipt Date: 20151117
  Transmission Date: 20160304
  Serious: Yes (Hospitalization)
  Sender: FDA-Public Use
  Company Number: TW-AMGEN-TWNSP2015097010

PATIENT
  Age: 69 Year
  Sex: Female

DRUGS (1)
  1. ENBREL [Suspect]
     Active Substance: ETANERCEPT
     Indication: RHEUMATOID ARTHRITIS
     Dosage: 25 MG, WEEKLY
     Route: 058
     Dates: start: 20140115

REACTIONS (4)
  - Ulna fracture [Recovered/Resolved]
  - Fall [Recovered/Resolved]
  - Comminuted fracture [Recovered/Resolved]
  - Wound infection bacterial [Recovering/Resolving]

NARRATIVE: CASE EVENT DATE: 20140719
